FAERS Safety Report 20861579 (Version 4)
Quarter: 2022Q3

REPORT INFORMATION
  Report Type: Report from Study
  Country: ES (occurrence: ES)
  Receive Date: 20220523
  Receipt Date: 20220912
  Transmission Date: 20221027
  Serious: Yes (Other)
  Sender: FDA-Public Use
  Company Number: ES-TAKEDA-2022TUS033534

PATIENT
  Age: 3 Year
  Sex: Female

DRUGS (19)
  1. TEDUGLUTIDE [Suspect]
     Active Substance: TEDUGLUTIDE
     Indication: Short-bowel syndrome
     Dosage: 0.29 MILLIGRAM, QD
     Route: 042
     Dates: start: 20190311, end: 20200601
  2. TEDUGLUTIDE [Suspect]
     Active Substance: TEDUGLUTIDE
     Indication: Short-bowel syndrome
     Dosage: 0.29 MILLIGRAM, QD
     Route: 042
     Dates: start: 20190311, end: 20200601
  3. TEDUGLUTIDE [Suspect]
     Active Substance: TEDUGLUTIDE
     Indication: Short-bowel syndrome
     Dosage: 0.29 MILLIGRAM, QD
     Route: 042
     Dates: start: 20190311, end: 20200601
  4. TEDUGLUTIDE [Suspect]
     Active Substance: TEDUGLUTIDE
     Indication: Short-bowel syndrome
     Dosage: 0.29 MILLIGRAM, QD
     Route: 042
     Dates: start: 20190311, end: 20200601
  5. TEDUGLUTIDE [Suspect]
     Active Substance: TEDUGLUTIDE
     Dosage: 0.40 MILLIGRAM, QD
     Route: 042
     Dates: start: 20200601, end: 20220128
  6. TEDUGLUTIDE [Suspect]
     Active Substance: TEDUGLUTIDE
     Dosage: 0.40 MILLIGRAM, QD
     Route: 042
     Dates: start: 20200601, end: 20220128
  7. TEDUGLUTIDE [Suspect]
     Active Substance: TEDUGLUTIDE
     Dosage: 0.40 MILLIGRAM, QD
     Route: 042
     Dates: start: 20200601, end: 20220128
  8. TEDUGLUTIDE [Suspect]
     Active Substance: TEDUGLUTIDE
     Dosage: 0.40 MILLIGRAM, QD
     Route: 042
     Dates: start: 20200601, end: 20220128
  9. TEDUGLUTIDE [Suspect]
     Active Substance: TEDUGLUTIDE
     Dosage: 0.5 MILLIGRAM, QD
     Route: 042
     Dates: start: 20220128
  10. TEDUGLUTIDE [Suspect]
     Active Substance: TEDUGLUTIDE
     Dosage: 0.5 MILLIGRAM, QD
     Route: 042
     Dates: start: 20220128
  11. TEDUGLUTIDE [Suspect]
     Active Substance: TEDUGLUTIDE
     Dosage: 0.5 MILLIGRAM, QD
     Route: 042
     Dates: start: 20220128
  12. TEDUGLUTIDE [Suspect]
     Active Substance: TEDUGLUTIDE
     Dosage: 0.5 MILLIGRAM, QD
     Route: 042
     Dates: start: 20220128
  13. URSODIOL [Concomitant]
     Active Substance: URSODIOL
     Indication: Cholestasis
     Dosage: 62.5 MILLIGRAM, BID
     Route: 048
     Dates: start: 20200601
  14. CUPRIC SULFATE ANHYDROUS [Concomitant]
     Active Substance: CUPRIC SULFATE ANHYDROUS
     Indication: Copper deficiency
     Dosage: 100 MICROGRAM, TID
     Route: 048
     Dates: start: 2018, end: 20210330
  15. BEMIPARIN SODIUM [Concomitant]
     Active Substance: BEMIPARIN SODIUM
     Indication: Prophylaxis
     Dosage: 937 INTERNATIONAL UNIT, QD
     Route: 058
     Dates: start: 2018
  16. CITRATE [Concomitant]
     Active Substance: CITRIC ACID MONOHYDRATE
     Indication: Metabolic acidosis
     Dosage: 3 MILLILITER, TID
     Route: 048
     Dates: start: 20210330, end: 20210615
  17. SODIUM BICARBONATE [Concomitant]
     Active Substance: SODIUM BICARBONATE
     Indication: Metabolic acidosis
     Dosage: 2 GRAM, QD
     Route: 048
     Dates: start: 20210321, end: 20210720
  18. SODIUM BICARBONATE [Concomitant]
     Active Substance: SODIUM BICARBONATE
     Dosage: 3 GRAM, QD
     Route: 048
     Dates: start: 20210720, end: 20220128
  19. SODIUM BICARBONATE [Concomitant]
     Active Substance: SODIUM BICARBONATE
     Dosage: 2 GRAM, QD
     Route: 048
     Dates: start: 20220128

REACTIONS (1)
  - Renal tubular dysfunction [Recovered/Resolved]

NARRATIVE: CASE EVENT DATE: 20210309
